FAERS Safety Report 11930859 (Version 2)
Quarter: 2016Q1

REPORT INFORMATION
  Report Type: Spontaneous
  Country: US (occurrence: US)
  Receive Date: 20160120
  Receipt Date: 20160122
  Transmission Date: 20160526
  Serious: Yes (Death)
  Sender: FDA-Public Use
  Company Number: PHHY2016US004534

PATIENT
  Age: 62 Year
  Sex: Female

DRUGS (2)
  1. PANTOPRAZOLE [Suspect]
     Active Substance: PANTOPRAZOLE SODIUM
     Indication: CHRONIC HEPATIC FAILURE
     Route: 041
  2. OCTREOTIDE. [Suspect]
     Active Substance: OCTREOTIDE
     Indication: CHRONIC HEPATIC FAILURE
     Route: 041

REACTIONS (2)
  - Multiple organ dysfunction syndrome [Fatal]
  - Product use issue [Unknown]
